FAERS Safety Report 25157041 (Version 2)
Quarter: 2025Q2

REPORT INFORMATION
  Report Type: Report from Study
  Country: US (occurrence: US)
  Receive Date: 20250403
  Receipt Date: 20250508
  Transmission Date: 20250716
  Serious: Yes (Other)
  Sender: ALEXION PHARMACEUTICALS
  Company Number: US-AstraZeneca-CH-00837070A

PATIENT
  Age: 67 Year
  Weight: 73.469 kg

DRUGS (1)
  1. OLAPARIB [Suspect]
     Active Substance: OLAPARIB
     Indication: Breast cancer
     Dosage: 150 MILLIGRAM, BID

REACTIONS (5)
  - Pulmonary oedema [Unknown]
  - Neoplasm malignant [Unknown]
  - Neck mass [Unknown]
  - Underdose [Unknown]
  - Metastases to bone [Unknown]
